FAERS Safety Report 24717788 (Version 1)
Quarter: 2024Q4

REPORT INFORMATION
  Report Type: Spontaneous
  Country: IN (occurrence: IN)
  Receive Date: 20241210
  Receipt Date: 20241210
  Transmission Date: 20250114
  Serious: Yes (Hospitalization, Other)
  Sender: AMGEN
  Company Number: IN-AMGEN-INDSP2024239127

PATIENT
  Age: 74 Year
  Sex: Male

DRUGS (9)
  1. PROLIA [Suspect]
     Active Substance: DENOSUMAB
     Indication: Hyperparathyroidism primary
     Dosage: 60 MILLIGRAM
     Route: 058
  2. CINACALCET HYDROCHLORIDE [Suspect]
     Active Substance: CINACALCET HYDROCHLORIDE
     Indication: Hyperparathyroidism primary
     Dosage: 30 MILLIGRAM, QD
     Route: 048
  3. LEVODOPA [Concomitant]
     Active Substance: LEVODOPA
     Dosage: 125 MILLIGRAM, QHS
  4. LEVODOPA [Concomitant]
     Active Substance: LEVODOPA
     Dosage: 125 MILLIGRAM, TID, HALF TABLET
  5. SELEGILINE [Concomitant]
     Active Substance: SELEGILINE
     Dosage: 5 MILLIGRAM, BID
  6. SODIUM CHLORIDE [Concomitant]
     Active Substance: SODIUM CHLORIDE
     Dosage: 150 MILLILITER, QH
  7. DOMPERIDONE [Concomitant]
     Active Substance: DOMPERIDONE
  8. METOCLOPRAMIDE [Concomitant]
     Active Substance: METOCLOPRAMIDE
  9. LEVOSULPIRIDE [Concomitant]
     Active Substance: LEVOSULPIRIDE

REACTIONS (6)
  - Muscle rigidity [Recovered/Resolved]
  - Hungry bone syndrome [Unknown]
  - Nephrolithiasis [Unknown]
  - Parathyroid tumour benign [Unknown]
  - Osteoporosis [Unknown]
  - Off label use [Unknown]
